FAERS Safety Report 5593442-2 (Version None)
Quarter: 2007Q4

REPORT INFORMATION
  Report Type: 
  Country: None (occurrence: None)
  Receive Date: 20071218
  Receipt Date: 20070315
  Transmission Date: 20080405
  Serious: Yes (Hospitalization, Other)
  Sender: FDA-Public Use
  Company Number: 2006149436

PATIENT
  Age: 52 Year
  Sex: Female
  Weight: 113.4 kg

DRUGS (3)
  1. BEXTRA [Suspect]
     Indication: ARTHRALGIA
     Dosage: 10 MG (10 MG,1 IN 1 D)
     Dates: start: 20030501
  2. BEXTRA [Suspect]
     Indication: INFLAMMATION
     Dosage: 10 MG (10 MG,1 IN 1 D)
     Dates: start: 20030501
  3. BEXTRA [Suspect]
     Indication: PAIN MANAGEMENT
     Dosage: 10 MG (10 MG,1 IN 1 D)
     Dates: start: 20030501

REACTIONS (3)
  - ANXIETY [None]
  - DEPRESSION [None]
  - MYOCARDIAL INFARCTION [None]
